FAERS Safety Report 16598238 (Version 1)
Quarter: 2019Q3

REPORT INFORMATION
  Report Type: Spontaneous
  Country: DE (occurrence: DE)
  Receive Date: 20190719
  Receipt Date: 20190719
  Transmission Date: 20191004
  Serious: Yes (Hospitalization)
  Sender: FDA-Public Use
  Company Number: DE-PFIZER INC-2019302256

PATIENT
  Age: 92 Year
  Sex: Male
  Weight: 76 kg

DRUGS (9)
  1. TORASEMID [Concomitant]
     Active Substance: TORSEMIDE
     Dosage: 20 MG, UNK (1-1-0)
     Route: 048
  2. APIXABAN [Concomitant]
     Active Substance: APIXABAN
     Dosage: 2.5 MG, 1-0-1, TABLETTEN
     Route: 048
  3. LEVOTHYROXINE SODIUM. [Concomitant]
     Active Substance: LEVOTHYROXINE SODIUM
     Dosage: 150 UG, UNK (1-0-0,)
     Route: 048
  4. TAMSULOSIN [Concomitant]
     Active Substance: TAMSULOSIN
     Dosage: 0.4 MG, UNK (1-0-0)
     Route: 048
  5. DIGITOXIN [Suspect]
     Active Substance: DIGITOXIN
     Dosage: 0.07 MG, 1-0-0, TABLETTEN
     Route: 048
  6. DILTIAZEM HCL [Suspect]
     Active Substance: DILTIAZEM HYDROCHLORIDE
     Dosage: 90 MG, 1-0-1, RETARD-TABLETTEN
     Route: 048
  7. OXYBUTYNIN. [Concomitant]
     Active Substance: OXYBUTYNIN CHLORIDE
     Dosage: 2.5 MG, UNK (1-1-0,)
     Route: 048
  8. METOPROLOL. [Suspect]
     Active Substance: METOPROLOL
     Dosage: 95 MG, UNK (1-0-0)
     Route: 048
  9. ENALAPRIL [Concomitant]
     Active Substance: ENALAPRIL
     Dosage: 10 MG, UNK (1/2-0-0)
     Route: 048

REACTIONS (4)
  - Fall [Unknown]
  - Syncope [Unknown]
  - Dizziness [Unknown]
  - Product prescribing error [Unknown]
